FAERS Safety Report 5176470-0 (Version None)
Quarter: 2006Q4

REPORT INFORMATION
  Report Type: 
  Country: None (occurrence: None)
  Receive Date: 20061207
  Receipt Date: 20061127
  Transmission Date: 20070319
  Serious: Yes (Hospitalization, Other)
  Sender: FDA-Public Use
  Company Number: A-JP2006-13141

PATIENT
  Age: 62 Year
  Sex: Female
  Weight: 46 kg

DRUGS (12)
  1. TRACLEER [Suspect]
     Indication: PULMONARY HYPERTENSION
     Dosage: 62.5 MG, BID, ORAL
     Route: 048
     Dates: start: 20060214, end: 20060305
  2. TRACLEER [Suspect]
     Indication: PULMONARY HYPERTENSION
     Dosage: 62.5 MG, BID, ORAL
     Route: 048
     Dates: start: 20060314, end: 20060327
  3. PREDNISOLONE [Concomitant]
  4. ALFACALCIDOL [Concomitant]
  5. LEVOTHYROXINE SODIUM [Concomitant]
  6. RANITIDINE HYDROCHLORIDE [Concomitant]
  7. ALLOPURINOL SODIUM [Concomitant]
  8. VALSARTAN [Concomitant]
  9. ALENDRONATE SODIUM [Concomitant]
  10. ATORVASTATIN CALCIUM [Concomitant]
  11. MAGNESIUM OXIDE [Concomitant]
  12. OXYGEN [Concomitant]

REACTIONS (4)
  - GAMMA-GLUTAMYLTRANSFERASE INCREASED [None]
  - GENERAL PHYSICAL HEALTH DETERIORATION [None]
  - PANCYTOPENIA [None]
  - PNEUMONIA [None]
